FAERS Safety Report 10882252 (Version 1)
Quarter: 2015Q1

REPORT INFORMATION
  Report Type: Spontaneous
  Country: US (occurrence: None)
  Receive Date: 20150226
  Receipt Date: 20150226
  Transmission Date: 20150721
  Serious: Yes (Hospitalization)
  Sender: FDA-Public Use
  Company Number: 54973  AE # 1600

PATIENT
  Age: 2 Year
  Sex: Female

DRUGS (1)
  1. HYLAND^S BABY COUGH SYRUP LIQUID [Suspect]
     Active Substance: HOMEOPATHICS
     Indication: COUGH
     Dosage: 5ML PO BID X 2 DOSES
     Route: 048

REACTIONS (5)
  - Pyrexia [None]
  - Rash [None]
  - Joint warmth [None]
  - Joint swelling [None]
  - Erythema multiforme [None]

NARRATIVE: CASE EVENT DATE: 20150116
